FAERS Safety Report 5135140-5 (Version None)
Quarter: 2006Q4

REPORT INFORMATION
  Report Type: 
  Country: None (occurrence: None)
  Receive Date: 20061025
  Receipt Date: 20061017
  Transmission Date: 20070319
  Serious: Yes (Other)
  Sender: FDA-Public Use
  Company Number: US-JNJFOC-20061003873

PATIENT
  Sex: Female
  Weight: 88 kg

DRUGS (13)
  1. REMICADE [Suspect]
     Indication: CROHN'S DISEASE
     Route: 042
  2. TRAMADOL [Concomitant]
  3. LEVBID [Concomitant]
  4. WELCHOL [Concomitant]
  5. MULTI-VITAMIN [Concomitant]
  6. ACTONEL [Concomitant]
  7. NASACORT AQ [Concomitant]
  8. PREVACID [Concomitant]
  9. COUMADIN [Concomitant]
  10. CALCIUM D [Concomitant]
  11. FEMORA [Concomitant]
  12. PREDNISONE TAB [Concomitant]
  13. LOMOTIL [Concomitant]

REACTIONS (5)
  - OEDEMA [None]
  - TETANY [None]
  - TREMOR [None]
  - URINARY TRACT INFECTION [None]
  - WEIGHT INCREASED [None]
